FAERS Safety Report 4863916-8 (Version None)
Quarter: 2005Q4

REPORT INFORMATION
  Report Type: 
  Country: None (occurrence: None)
  Receive Date: 20051219
  Receipt Date: 20051206
  Transmission Date: 20060501
  Serious: Yes (Other)
  Sender: FDA-Public Use
  Company Number: 2005165020

PATIENT
  Sex: Male
  Weight: 113.3993 kg

DRUGS (6)
  1. VIAGRA [Suspect]
     Indication: ERECTILE DYSFUNCTION
     Dosage: 100 MG (100 MG, AS NECESSARY), ORAL; 7 YEARS AGO
     Route: 048
     Dates: end: 20050101
  2. CIALIS [Suspect]
     Indication: ILL-DEFINED DISORDER
  3. LEVITRA [Suspect]
     Indication: ILL-DEFINED DISORDER
  4. PLENDIL [Concomitant]
  5. LISINOPRIL [Concomitant]
  6. GEMFIBROZIL [Concomitant]

REACTIONS (1)
  - DRUG INEFFECTIVE [None]
